FAERS Safety Report 7510192-3 (Version None)
Quarter: 2011Q2

REPORT INFORMATION
  Report Type: 
  Country: None (occurrence: None)
  Receive Date: 20110527
  Receipt Date: 20110517
  Transmission Date: 20111010
  Serious: Yes (Other)
  Sender: FDA-Public Use
  Company Number: DE-UCBSA-027298

PATIENT
  Sex: Male

DRUGS (10)
  1. KEPPRA [Suspect]
     Indication: PARTIAL SEIZURES
     Dates: start: 20101228
  2. KEPPRA [Suspect]
  3. KEPPRA [Suspect]
     Dates: end: 20110127
  4. KEPPRA [Suspect]
     Dates: end: 20110127
  5. KEPPRA [Suspect]
     Dosage: DOSAGE WAS HALVED: 1000MG
     Dates: start: 20110501, end: 20110511
  6. KEPPRA [Suspect]
  7. KEPPRA [Suspect]
  8. KEPPRA [Suspect]
     Indication: SYNCOPE
     Dates: start: 20101228
  9. KEPPRA [Suspect]
  10. KEPPRA [Suspect]
     Dosage: DOSAGE WAS HALVED: 1000MG
     Dates: start: 20110501, end: 20110511

REACTIONS (4)
  - FATIGUE [None]
  - HAEMOGLOBIN DECREASED [None]
  - HAIRY CELL LEUKAEMIA [None]
  - PANCYTOPENIA [None]
